FAERS Safety Report 13023940 (Version 1)
Quarter: 2016Q4

REPORT INFORMATION
  Report Type: Spontaneous
  Country: US (occurrence: US)
  Receive Date: 20161213
  Receipt Date: 20161213
  Transmission Date: 20170207
  Serious: No
  Sender: FDA-Public Use
  Company Number: US-TEVA-676104USA

PATIENT
  Age: 7 Year
  Sex: Male

DRUGS (2)
  1. AZITHROMYCIN ANHYDROUS. [Suspect]
     Active Substance: AZITHROMYCIN ANHYDROUS
     Indication: ROCKY MOUNTAIN SPOTTED FEVER
  2. AZITHROMYCIN ANHYDROUS. [Suspect]
     Active Substance: AZITHROMYCIN ANHYDROUS
     Indication: LYME DISEASE
     Dosage: 200MG/5ML

REACTIONS (4)
  - Adverse event [Unknown]
  - Product physical consistency issue [Unknown]
  - Product preparation error [Unknown]
  - Therapeutic product ineffective [Unknown]
